FAERS Safety Report 10700466 (Version 2)
Quarter: 2015Q1

REPORT INFORMATION
  Report Type: Spontaneous
  Country: GB (occurrence: None)
  Receive Date: 20150107
  Receipt Date: 20150128
  Transmission Date: 20150721
  Serious: Yes (Hospitalization)
  Sender: FDA-Public Use
  Company Number: GB2014K5532SPO

PATIENT
  Age: 51 Year
  Sex: Female
  Weight: 89 kg

DRUGS (4)
  1. LANSOPRAZOLE. [Suspect]
     Active Substance: LANSOPRAZOLE
     Dates: start: 20140811, end: 20141002
  2. TRAZODONE [Concomitant]
     Active Substance: TRAZODONE HYDROCHLORIDE
  3. SERTRALINE [Concomitant]
     Active Substance: SERTRALINE HYDROCHLORIDE
  4. COLPERMIN (PEPPERMINT OIL) [Concomitant]

REACTIONS (31)
  - Swelling face [None]
  - Dehydration [None]
  - Cardiac disorder [None]
  - Peripheral swelling [None]
  - Vaginal haemorrhage [None]
  - Fall [None]
  - Constipation [None]
  - Arthralgia [None]
  - Vaginal disorder [None]
  - Chest pain [None]
  - Muscle spasms [None]
  - Weight decreased [None]
  - Nasal obstruction [None]
  - Myalgia [None]
  - Hypoaesthesia [None]
  - Dry mouth [None]
  - Local swelling [None]
  - Pain in extremity [None]
  - Vertigo [None]
  - Muscular weakness [None]
  - Snoring [None]
  - Hypersensitivity [None]
  - Influenza like illness [None]
  - Musculoskeletal stiffness [None]
  - Vaginal prolapse [None]
  - Suicidal ideation [None]
  - Nasal dryness [None]
  - Diarrhoea [None]
  - Urinary retention [None]
  - Dyspepsia [None]
  - Panic attack [None]

NARRATIVE: CASE EVENT DATE: 201408
